FAERS Safety Report 7867207-2 (Version None)
Quarter: 2011Q4

REPORT INFORMATION
  Report Type: 
  Country: None (occurrence: None)
  Receive Date: 20111028
  Receipt Date: 20111018
  Transmission Date: 20120403
  Serious: Yes (Congenital Anomaly)
  Sender: FDA-Public Use
  Company Number: US-GLAXOSMITHKLINE-A0950766A

PATIENT
  Sex: Male

DRUGS (1)
  1. PAXIL [Suspect]
     Indication: PRODUCT USED FOR UNKNOWN INDICATION
     Dosage: 30MG UNKNOWN
     Route: 064

REACTIONS (5)
  - RESPIRATORY DISTRESS [None]
  - TACHYCARDIA FOETAL [None]
  - TALIPES [None]
  - PATENT DUCTUS ARTERIOSUS [None]
  - MATERNAL EXPOSURE DURING PREGNANCY [None]
